FAERS Safety Report 8229630-6 (Version None)
Quarter: 2012Q1

REPORT INFORMATION
  Report Type: 
  Country: None (occurrence: None)
  Receive Date: 20120322
  Receipt Date: 20120312
  Transmission Date: 20120608
  Serious: Yes (Other)
  Sender: FDA-Public Use
  Company Number: US-FRI-1000029158

PATIENT
  Age: 42 Year
  Sex: Female

DRUGS (3)
  1. HYDROXYCHLOROQUINE SULFATE [Concomitant]
     Dosage: 400 MG
  2. PREDNISONE TAB [Concomitant]
     Indication: PAIN
     Dosage: 5 MG
  3. MILNACIPRAN [Suspect]
     Dosage: 100 MG

REACTIONS (3)
  - HYPERTENSION [None]
  - SINUS TACHYCARDIA [None]
  - CARDIOMYOPATHY [None]
